FAERS Safety Report 7319569-2 (Version None)
Quarter: 2011Q1

REPORT INFORMATION
  Report Type: 
  Country: None (occurrence: None)
  Receive Date: 20110228
  Receipt Date: 20100525
  Transmission Date: 20110831
  Serious: No
  Sender: FDA-Public Use
  Company Number: A0861217A

PATIENT
  Age: 32 Year
  Sex: Female

DRUGS (2)
  1. OTHER MEDICATIONS [Concomitant]
  2. LAMICTAL [Suspect]
     Indication: BIPOLAR DISORDER
     Dosage: 200MG PER DAY
     Route: 048
     Dates: start: 20060101, end: 20100301

REACTIONS (2)
  - URTICARIA [None]
  - RASH [None]
